FAERS Safety Report 8474140-4 (Version None)
Quarter: 2012Q2

REPORT INFORMATION
  Report Type: 
  Country: None (occurrence: None)
  Receive Date: 20120628
  Receipt Date: 20120625
  Transmission Date: 20120825
  Serious: No
  Sender: FDA-Public Use
  Company Number: US-PFIZER INC-2012123102

PATIENT
  Sex: Female
  Weight: 113.38 kg

DRUGS (9)
  1. ESTRADIOL [Concomitant]
     Dosage: 1 MG, 1X/DAY
  2. CELEBREX [Suspect]
     Indication: ARTHRITIS
     Dosage: 200 MG, 2X/DAY
     Route: 048
  3. LISINOPRIL [Concomitant]
     Dosage: 20 MG, 1X/DAY
  4. OMEPRAZOLE [Concomitant]
     Dosage: 20 MG, 1X/DAY
  5. MAGNESIUM [Concomitant]
     Dosage: 400 MG, 1X/DAY
  6. METFORMIN [Concomitant]
     Dosage: 500 MG, 1X/DAY
  7. GLIMEPIRIDE [Concomitant]
     Dosage: 2 MG, 1X/DAY
  8. MOBIC [Suspect]
     Indication: ARTHRITIS
     Dosage: 15 MG, 1X/DAY
     Route: 048
  9. KLOR-CON [Concomitant]
     Dosage: 10 MG, 1X/DAY

REACTIONS (1)
  - MENISCUS LESION [None]
